FAERS Safety Report 8783332 (Version 4)
Quarter: 2012Q4

REPORT INFORMATION
  Report Type: 
  Country: US (occurrence: US)
  Receive Date: 20120913
  Receipt Date: 20121001
  Transmission Date: 20130627
  Serious: Yes (Other)
  Sender: FDA-Public Use
  Company Number: US-ASTRAZENECA-2012SE69899

PATIENT
  Age: 81 Year
  Sex: Female

DRUGS (3)
  1. TOPROL XL [Suspect]
     Dosage: GENERIC
     Route: 048
  2. TOPROL XL [Suspect]
     Route: 048
  3. ACCOLATE [Suspect]
     Route: 048

REACTIONS (4)
  - Brain neoplasm [Unknown]
  - Back pain [Unknown]
  - Hypoacusis [Unknown]
  - Malaise [Unknown]
